FAERS Safety Report 9861451 (Version 1)
Quarter: 2014Q1

REPORT INFORMATION
  Report Type: Spontaneous
  Country: US (occurrence: US)
  Receive Date: 20140203
  Receipt Date: 20140203
  Transmission Date: 20141002
  Serious: Yes (Death, Hospitalization, Other)
  Sender: FDA-Public Use
  Company Number: US-BIOGENIDEC-2014BI008030

PATIENT
  Age: 57 Year
  Sex: Female

DRUGS (2)
  1. TYSABRI [Suspect]
     Indication: MULTIPLE SCLEROSIS
     Route: 042
     Dates: start: 20081007, end: 20100824
  2. KEPPRA [Concomitant]

REACTIONS (5)
  - Death [Fatal]
  - Multiple sclerosis [Fatal]
  - Dementia [Fatal]
  - Convulsion [Unknown]
  - Central nervous system lesion [Unknown]
